FAERS Safety Report 10582288 (Version 1)
Quarter: 2014Q4

REPORT INFORMATION
  Report Type: Spontaneous
  Country: US (occurrence: US)
  Receive Date: 20141113
  Receipt Date: 20141113
  Transmission Date: 20150529
  Serious: No
  Sender: FDA-Public Use
  Company Number: US-MYLANLABS-2014M1006513

PATIENT
  Age: 20 Year
  Sex: Female
  Weight: 47.62 kg

DRUGS (1)
  1. XULANE [Suspect]
     Active Substance: ETHINYL ESTRADIOL\NORELGESTROMIN
     Indication: CONTRACEPTION
     Dosage: 150 / 35 ?G, QD CHANGED QWEEK X 3 AND OFF ONE WEEK, REPEAT
     Route: 062
     Dates: start: 201405

REACTIONS (1)
  - Application site urticaria [Not Recovered/Not Resolved]

NARRATIVE: CASE EVENT DATE: 201409
